FAERS Safety Report 8093965-0 (Version None)
Quarter: 2012Q1

REPORT INFORMATION
  Report Type: 
  Country: None (occurrence: None)
  Receive Date: 20120130
  Receipt Date: 20120125
  Transmission Date: 20120608
  Serious: Yes (Death)
  Sender: FDA-Public Use
  Company Number: US-CELGENEUS-163-21880-12012592

PATIENT
  Sex: Female

DRUGS (9)
  1. TEGRETOL-XR [Concomitant]
     Route: 065
  2. METOPROLOL TARTRATE [Concomitant]
     Route: 065
  3. REVLIMID [Suspect]
     Indication: MYELODYSPLASTIC SYNDROME
     Dosage: 5 MILLIGRAM
     Route: 048
     Dates: start: 20111223
  4. SPIRONOLACTONE [Concomitant]
     Route: 065
  5. LASIX [Concomitant]
     Route: 065
  6. SIMVASTATIN [Concomitant]
     Route: 065
  7. HUMALOG MIX 75/25 [Concomitant]
     Route: 065
  8. CARDIZEM CD [Concomitant]
     Route: 065
  9. SYNTHROID [Concomitant]
     Route: 065

REACTIONS (1)
  - DEATH [None]
